FAERS Safety Report 7525179-4 (Version None)
Quarter: 2011Q2

REPORT INFORMATION
  Report Type: 
  Country: None (occurrence: None)
  Receive Date: 20110602
  Receipt Date: 20110602
  Transmission Date: 20111010
  Serious: Yes (Death)
  Sender: FDA-Public Use
  Company Number: None

PATIENT
  Age: 85 Year
  Sex: Female
  Weight: 45.5 kg

DRUGS (1)
  1. ZYPREXA [Suspect]
     Indication: PSYCHOTIC DISORDER
     Dosage: 5MG 2 DOSES
     Dates: start: 20110529

REACTIONS (9)
  - TACHYCARDIA [None]
  - DYSKINESIA [None]
  - RESPIRATORY FAILURE [None]
  - AGITATION [None]
  - MYOCLONUS [None]
  - MUSCULOSKELETAL STIFFNESS [None]
  - MUSCLE TWITCHING [None]
  - OPISTHOTONUS [None]
  - PSYCHOTIC DISORDER [None]
